FAERS Safety Report 13591264 (Version 3)
Quarter: 2017Q2

REPORT INFORMATION
  Report Type: Spontaneous
  Country: FR (occurrence: FR)
  Receive Date: 20170530
  Receipt Date: 20170612
  Transmission Date: 20170830
  Serious: Yes (Hospitalization)
  Sender: FDA-Public Use
  Company Number: FR-PFIZER INC-2017230735

PATIENT
  Age: 58 Year
  Sex: Male

DRUGS (14)
  1. PRIMPERAN [Suspect]
     Active Substance: METOCLOPRAMIDE HYDROCHLORIDE
     Dosage: UNK
     Route: 048
     Dates: start: 20170427
  2. VANCOMYCIN HCL [Suspect]
     Active Substance: VANCOMYCIN HYDROCHLORIDE
     Dosage: UNK
     Route: 042
     Dates: start: 20170427
  3. TAZOCILLINE [Suspect]
     Active Substance: PIPERACILLIN SODIUM\TAZOBACTAM SODIUM
     Dosage: UNK
     Route: 042
     Dates: start: 20170427
  4. FLUCONAZOLE. [Suspect]
     Active Substance: FLUCONAZOLE
     Dosage: UNK
     Route: 042
     Dates: start: 20170427, end: 20170515
  5. TOPALGIC (FRANCE) [Suspect]
     Active Substance: TRAMADOL
     Dosage: UNK
     Route: 048
     Dates: start: 20170427
  6. PARACETAMOL [Concomitant]
     Active Substance: ACETAMINOPHEN
     Dosage: UNK
     Dates: start: 20170515
  7. VITAMIN K1 [Concomitant]
     Active Substance: PHYTONADIONE
     Dosage: UNK
     Dates: start: 20170517
  8. LOVENOX [Suspect]
     Active Substance: ENOXAPARIN SODIUM
     Dosage: UNK
     Route: 058
     Dates: start: 20170428
  9. ACUPAN [Suspect]
     Active Substance: NEFOPAM HYDROCHLORIDE
     Dosage: UNK
     Route: 042
     Dates: start: 20170505
  10. DIFFU K [Concomitant]
     Active Substance: POTASSIUM CHLORIDE
     Dosage: UNK
     Dates: start: 20170517
  11. TRANXENE T-TAB [Suspect]
     Active Substance: CLORAZEPATE DIPOTASSIUM
     Dosage: UNK
     Route: 048
     Dates: start: 20170429
  12. EUPRESSYL /00631801/ [Suspect]
     Active Substance: URAPIDIL
     Dosage: UNK
     Route: 048
     Dates: start: 20170506, end: 201705
  13. PANTOPRAZOLE [Suspect]
     Active Substance: PANTOPRAZOLE
     Dosage: UNK
     Route: 048
     Dates: start: 20170428
  14. ALPRAZOLAM. [Suspect]
     Active Substance: ALPRAZOLAM
     Dosage: UNK
     Route: 048
     Dates: start: 20170512

REACTIONS (2)
  - Neutropenia [Recovering/Resolving]
  - Leukopenia [Recovering/Resolving]

NARRATIVE: CASE EVENT DATE: 20170512
